FAERS Safety Report 7409097-8 (Version None)
Quarter: 2011Q2

REPORT INFORMATION
  Report Type: 
  Country: None (occurrence: None)
  Receive Date: 20110407
  Receipt Date: 20110407
  Transmission Date: 20111010
  Serious: No
  Sender: FDA-Public Use
  Company Number: None

PATIENT
  Age: 57 Year
  Sex: Male
  Weight: 78.4723 kg

DRUGS (3)
  1. FLOMAX [Suspect]
  2. AVODART [Concomitant]
  3. UROXATRAL [Concomitant]

REACTIONS (3)
  - EJACULATION FAILURE [None]
  - DIZZINESS [None]
  - PRODUCT SUBSTITUTION ISSUE [None]
